FAERS Safety Report 5532030-0 (Version None)
Quarter: 2007Q4

REPORT INFORMATION
  Report Type: 
  Country: None (occurrence: None)
  Receive Date: 20071203
  Receipt Date: 20071128
  Transmission Date: 20080405
  Serious: Yes (Life-Threatening, Congenital Anomaly)
  Sender: FDA-Public Use
  Company Number: A0633844A

PATIENT
  Sex: Male

DRUGS (6)
  1. PAXIL CR [Suspect]
     Dosage: 12.5MG PER DAY
     Dates: start: 20020905, end: 20040801
  2. PRENATAL VITAMINS [Concomitant]
  3. VITAMIN E [Concomitant]
  4. HERBAL TEA [Concomitant]
  5. COUGH MEDICINE [Concomitant]
  6. TYLENOL [Concomitant]

REACTIONS (18)
  - ATRIAL SEPTAL DEFECT [None]
  - BUNDLE BRANCH BLOCK [None]
  - CARDIAC DISORDER [None]
  - CARDIAC FAILURE CONGESTIVE [None]
  - CARDIAC MURMUR [None]
  - CARDIAC VENTRICULAR DISORDER [None]
  - DACRYOSTENOSIS ACQUIRED [None]
  - DOUBLE OUTLET RIGHT VENTRICLE [None]
  - DRUG EXPOSURE DURING PREGNANCY [None]
  - EATING DISORDER [None]
  - EYE DISCHARGE [None]
  - HYPERSOMNIA [None]
  - JAUNDICE [None]
  - NASOPHARYNGITIS [None]
  - RESPIRATORY DISORDER [None]
  - VENTRICULAR HYPERTROPHY [None]
  - VENTRICULAR SEPTAL DEFECT [None]
  - WEIGHT INCREASED [None]
